FAERS Safety Report 6541704-4 (Version None)
Quarter: 2010Q1

REPORT INFORMATION
  Report Type: 
  Country: None (occurrence: None)
  Receive Date: 20100119
  Receipt Date: 20100108
  Transmission Date: 20100710
  Serious: Yes (Other)
  Sender: FDA-Public Use
  Company Number: DE-AMGEN-US385308

PATIENT
  Sex: Female

DRUGS (7)
  1. ENBREL [Suspect]
     Indication: RHEUMATOID ARTHRITIS
     Route: 058
     Dates: start: 20020101
  2. ENBREL [Suspect]
     Route: 058
  3. CYANOCOBALAMIN [Concomitant]
     Dosage: UNKNOWN DOSE EVERY 4 WEEKS
  4. FERROUS SULFATE TAB [Concomitant]
     Dosage: UNKNOWN
  5. IDEOS [Concomitant]
     Dosage: UNKNOWN
  6. GLUCOCORTICOIDS [Concomitant]
  7. LEVOTHYROXINE SODIUM [Concomitant]

REACTIONS (4)
  - ABDOMINAL PAIN UPPER [None]
  - CHILLS [None]
  - NAUSEA [None]
  - UTERINE MASS [None]
